FAERS Safety Report 5572857-2 (Version None)
Quarter: 2007Q4

REPORT INFORMATION
  Report Type: 
  Country: None (occurrence: None)
  Receive Date: 20071223
  Receipt Date: 20071219
  Transmission Date: 20080405
  Serious: Yes (Other)
  Sender: FDA-Public Use
  Company Number: PHBS2007NL21171

PATIENT
  Sex: Male

DRUGS (12)
  1. ZOMETA [Suspect]
     Indication: METASTASIS
     Dosage: 5 ML, UNK
     Route: 042
     Dates: start: 20050901, end: 20070701
  2. LUCRIN [Concomitant]
     Dosage: 3.75 MG, UNK
  3. OMEPRAZOLE [Concomitant]
     Dosage: 20 MG, UNK
  4. PERSANTINE [Concomitant]
     Dosage: 150 MG, UNK
  5. FLUNITRAZEPAM [Concomitant]
     Dosage: 1 MG, UNK
  6. MORPHINE SULFATE [Concomitant]
     Dosage: 10 MG, UNK
  7. CELIPROLOL HYDROCHLORIDE [Concomitant]
     Dosage: 200 MG, UNK
  8. ACIDUM ACETYLSALICYLICUM [Concomitant]
     Dosage: 80 MG/DAY
  9. CLARITHROMYCIN [Concomitant]
     Dosage: 250 MG, UNK
  10. CALCICHEW [Concomitant]
     Dosage: 500 MG, UNK
  11. TILDIEM [Concomitant]
     Dosage: 200 MG, UNK
  12. CHLOROTHIAZIDE [Concomitant]

REACTIONS (1)
  - OSTEONECROSIS [None]
